FAERS Safety Report 15719531 (Version 6)
Quarter: 2019Q1

REPORT INFORMATION
  Report Type: Spontaneous
  Country: SE (occurrence: SE)
  Receive Date: 20181213
  Receipt Date: 20190220
  Transmission Date: 20190417
  Serious: Yes (Hospitalization, Other)
  Sender: FDA-Public Use
  Company Number: SE-ALLERGAN-1857088US

PATIENT
  Age: 32 Year
  Sex: Female

DRUGS (3)
  1. MESALAZINE UNK [Suspect]
     Active Substance: MESALAMINE
     Indication: COLITIS ULCERATIVE
     Dosage: UNK
     Route: 048
  2. CIPROFLOXACIN. [Concomitant]
     Active Substance: CIPROFLOXACIN
     Indication: URINARY TRACT INFECTION
  3. CIPROFLOXACIN. [Concomitant]
     Active Substance: CIPROFLOXACIN
     Indication: URINARY TRACT INFECTION
     Dosage: UNK
     Route: 048

REACTIONS (9)
  - Calculus urinary [Recovered/Resolved]
  - Abdominal discomfort [Recovered/Resolved]
  - Nephrolithiasis [Recovered/Resolved]
  - Renal colic [Recovered/Resolved]
  - Haematuria [Recovered/Resolved]
  - Abdominal pain lower [Recovered/Resolved]
  - Tenderness [Recovering/Resolving]
  - Flank pain [Recovered/Resolved]
  - Micturition urgency [Recovered/Resolved]
